FAERS Safety Report 14781740 (Version 2)
Quarter: 2018Q2

REPORT INFORMATION
  Report Type: Report from Study
  Country: None (occurrence: TR)
  Receive Date: 20180420
  Receipt Date: 20180420
  Transmission Date: 20180711
  Serious: Yes (Hospitalization)
  Sender: FDA-Public Use
  Company Number: TR-ABBVIE-18K-161-2328586-00

PATIENT
  Age: 78 Year
  Sex: Male
  Weight: 60 kg

DRUGS (8)
  1. DUODOPA [Suspect]
     Active Substance: CARBIDOPA\LEVODOPA
     Indication: PARKINSON^S DISEASE
     Dosage: MORNING DOSE: (ML): 4.50; CONTINUOUS DOSE: (ML): 2.70; EXTRA DOSE: (ML): 1.00
     Route: 050
     Dates: start: 20180412, end: 201804
  2. DUODOPA [Suspect]
     Active Substance: CARBIDOPA\LEVODOPA
     Dosage: MORNING DOSE: (ML): 4.50; CONTINUOUS DOSE: (ML): 3.10; EXTRA DOSE: (ML): 1.00
     Route: 050
     Dates: start: 201804
  3. RIVOTRIL [Concomitant]
     Active Substance: CLONAZEPAM
     Indication: PARKINSON^S DISEASE
     Dosage: 1X1/2
     Route: 048
  4. DOPALEVO [Concomitant]
     Indication: PARKINSON^S DISEASE
     Route: 048
     Dates: start: 20180419
  5. KETYA [Concomitant]
     Indication: PARKINSON^S DISEASE
     Route: 048
  6. COGITO [Concomitant]
     Indication: PARKINSON^S DISEASE
     Dosage: 1X1/2
     Route: 048
     Dates: start: 20180411
  7. SPASMEX [Concomitant]
     Indication: PARKINSON^S DISEASE
     Route: 048
  8. PANTO [Concomitant]
     Active Substance: PANTOPRAZOLE SODIUM
     Indication: PROPHYLAXIS
     Route: 048

REACTIONS (2)
  - C-reactive protein increased [Not Recovered/Not Resolved]
  - Stoma site infection [Recovering/Resolving]

NARRATIVE: CASE EVENT DATE: 20180418
